FAERS Safety Report 13758813 (Version 3)
Quarter: 2017Q3

REPORT INFORMATION
  Report Type: Spontaneous
  Country: JP (occurrence: JP)
  Receive Date: 20170717
  Receipt Date: 20170929
  Transmission Date: 20171127
  Serious: Yes (Death, Other)
  Sender: FDA-Public Use
  Company Number: PHJP2017JP022840

PATIENT
  Age: 66 Year
  Sex: Female
  Weight: 47.9 kg

DRUGS (1)
  1. REVOLADE TAB [Suspect]
     Active Substance: ELTROMBOPAG
     Indication: IMMUNE THROMBOCYTOPENIC PURPURA
     Dosage: 2 DF, QD
     Route: 048
     Dates: start: 20161012, end: 20170520

REACTIONS (4)
  - Platelet count decreased [Unknown]
  - Headache [Fatal]
  - Cardio-respiratory arrest [Unknown]
  - Cerebral haemorrhage [Fatal]

NARRATIVE: CASE EVENT DATE: 20170520
